FAERS Safety Report 8377856-3 (Version None)
Quarter: 2012Q2

REPORT INFORMATION
  Report Type: 
  Country: None (occurrence: None)
  Receive Date: 20120522
  Receipt Date: 20120516
  Transmission Date: 20120825
  Serious: Yes (Hospitalization, Disabling, Other)
  Sender: FDA-Public Use
  Company Number: US-MERCK-1111USA00988

PATIENT
  Age: 54 Year
  Sex: Female

DRUGS (9)
  1. FOSAMAX [Suspect]
     Indication: OSTEOPOROSIS PROPHYLAXIS
     Route: 048
     Dates: start: 19970101, end: 20000101
  2. FOSAMAX [Suspect]
     Route: 048
     Dates: start: 20000101, end: 20071101
  3. FOSAMAX [Suspect]
     Route: 048
     Dates: start: 20090101, end: 20090901
  4. [THERAPY UNSPECIFIED] [Concomitant]
     Indication: STEROID THERAPY
     Route: 065
     Dates: start: 19740101
  5. VITAMINS (UNSPECIFIED) [Concomitant]
     Indication: ROUTINE HEALTH MAINTENANCE
     Route: 065
     Dates: start: 19950101
  6. FOSAMAX PLUS D [Suspect]
     Indication: OSTEOPOROSIS
     Route: 048
     Dates: start: 20071201, end: 20090301
  7. FOSAMAX [Suspect]
     Route: 048
     Dates: start: 20090101, end: 20090901
  8. FOSAMAX [Suspect]
     Route: 048
     Dates: start: 20000101, end: 20071101
  9. FOSAMAX [Suspect]
     Indication: OSTEOPOROSIS
     Route: 048
     Dates: start: 19970101, end: 20000101

REACTIONS (9)
  - ARTHROPATHY [None]
  - LOW TURNOVER OSTEOPATHY [None]
  - URTICARIA [None]
  - FEMUR FRACTURE [None]
  - FRACTURE NONUNION [None]
  - CROHN'S DISEASE [None]
  - HYPOTHYROIDISM [None]
  - ACETABULUM FRACTURE [None]
  - CHRONIC LYMPHOCYTIC LEUKAEMIA [None]
